FAERS Safety Report 9381892 (Version 1)
Quarter: 2013Q3

REPORT INFORMATION
  Report Type: Spontaneous
  Country: DE (occurrence: DE)
  Receive Date: 20130703
  Receipt Date: 20130703
  Transmission Date: 20140515
  Serious: Yes (Other)
  Sender: FDA-Public Use
  Company Number: GXKR2013DE002266

PATIENT
  Age: 22 Year
  Sex: Male
  Weight: 115 kg

DRUGS (1)
  1. SALBUTAMOL 1 A PHARMA [Suspect]
     Indication: ASTHMA
     Dosage: UNK, ONCE/SINGLE
     Dates: start: 20130611, end: 20130611

REACTIONS (4)
  - Syncope [Recovering/Resolving]
  - Fall [Recovering/Resolving]
  - Face injury [None]
  - Limb injury [None]
